FAERS Safety Report 12044867 (Version 1)
Quarter: 2016Q1

REPORT INFORMATION
  Report Type: Report from Study
  Country: US (occurrence: US)
  Receive Date: 20160208
  Receipt Date: 20160208
  Transmission Date: 20160526
  Serious: No
  Sender: FDA-Public Use
  Company Number: US-ABBVIE-15P-163-1415238-00

PATIENT
  Age: 53 Year
  Sex: Female

DRUGS (4)
  1. APRISO [Concomitant]
     Active Substance: MESALAMINE
     Indication: PRODUCT USED FOR UNKNOWN INDICATION
     Route: 065
  2. HUMIRA [Suspect]
     Active Substance: ADALIMUMAB
     Route: 058
     Dates: start: 201504
  3. HUMIRA [Suspect]
     Active Substance: ADALIMUMAB
     Indication: CROHN^S DISEASE
     Dosage: FOUR 40 MILLIGRAM SUBCUTANEOUS INJECTIONS
     Route: 058
     Dates: start: 20150319, end: 20150319
  4. HUMIRA [Suspect]
     Active Substance: ADALIMUMAB
     Dosage: TWO 40 MILLIGRAM SUBCUTANEOUS INJECTIONS
     Route: 058
     Dates: start: 20150402, end: 20150402

REACTIONS (4)
  - Chest pain [Recovered/Resolved]
  - Stress cardiomyopathy [Not Recovered/Not Resolved]
  - Hordeolum [Not Recovered/Not Resolved]
  - Alopecia [Not Recovered/Not Resolved]

NARRATIVE: CASE EVENT DATE: 2015
